FAERS Safety Report 18165909 (Version 1)
Quarter: 2020Q3

REPORT INFORMATION
  Report Type: Spontaneous
  Country: US (occurrence: US)
  Receive Date: 20200818
  Receipt Date: 20200818
  Transmission Date: 20201103
  Serious: Yes (Other)
  Sender: FDA-Public Use
  Company Number: US-OTSUKA-2018_025386

PATIENT
  Sex: Female

DRUGS (2)
  1. ABILIFY [Suspect]
     Active Substance: ARIPIPRAZOLE
     Indication: MAJOR DEPRESSION
  2. ABILIFY [Suspect]
     Active Substance: ARIPIPRAZOLE
     Indication: BIPOLAR DISORDER
     Dosage: (5?100 MG) QD
     Route: 065
     Dates: start: 20090226, end: 20141201

REACTIONS (8)
  - Suicidal ideation [Not Recovered/Not Resolved]
  - Economic problem [Unknown]
  - Compulsive shopping [Not Recovered/Not Resolved]
  - Overdose [Unknown]
  - Compulsive hoarding [Not Recovered/Not Resolved]
  - Obsessive-compulsive disorder [Unknown]
  - Gambling disorder [Not Recovered/Not Resolved]
  - Suicide attempt [Not Recovered/Not Resolved]

NARRATIVE: CASE EVENT DATE: 201901
